FAERS Safety Report 14967430 (Version 1)
Quarter: 2018Q2

REPORT INFORMATION
  Report Type: Spontaneous
  Country: US (occurrence: US)
  Receive Date: 20180511
  Receipt Date: 20180511
  Transmission Date: 20180711
  Serious: No
  Sender: FDA-Public Use
  Company Number: None

PATIENT
  Age: 72 Year
  Sex: Male

DRUGS (2)
  1. XGEVA [Concomitant]
     Active Substance: DENOSUMAB
  2. ZYTIGA TAB 500MG [Suspect]
     Active Substance: ABIRATERONE ACETATE

REACTIONS (2)
  - Hypoaesthesia [None]
  - Ageusia [None]

NARRATIVE: CASE EVENT DATE: 20180511
